FAERS Safety Report 10007273 (Version 1)
Quarter: 2014Q1

REPORT INFORMATION
  Report Type: Spontaneous
  Country: US (occurrence: None)
  Receive Date: 20140311
  Receipt Date: 20140311
  Transmission Date: 20141002
  Serious: Yes (Hospitalization, Other)
  Sender: FDA-Public Use
  Company Number: OPCR20140078

PATIENT
  Age: 24 Year
  Sex: Male

DRUGS (2)
  1. OPANA ER [Suspect]
     Indication: DRUG ABUSE
     Route: 042
  2. OXYCODONE HCL [Suspect]
     Indication: DRUG ABUSE
     Route: 042

REACTIONS (5)
  - Microangiopathic haemolytic anaemia [None]
  - Thrombotic microangiopathy [None]
  - Renal failure acute [None]
  - Drug abuse [None]
  - Polysubstance dependence [None]
